FAERS Safety Report 8256988-4 (Version None)
Quarter: 2012Q2

REPORT INFORMATION
  Report Type: 
  Country: None (occurrence: None)
  Receive Date: 20120403
  Receipt Date: 20120330
  Transmission Date: 20120825
  Serious: Yes (Death, Hospitalization)
  Sender: FDA-Public Use
  Company Number: US-GLAXOSMITHKLINE-A0925423A

PATIENT
  Age: 46 Year
  Sex: Female

DRUGS (9)
  1. AVANDIA [Suspect]
     Indication: DIABETES MELLITUS
     Dosage: 4MG PER DAY
     Route: 048
     Dates: start: 20031124, end: 20050224
  2. RABEPRAZOLE SODIUM [Concomitant]
  3. METFORMIN HCL [Concomitant]
  4. PAXIL [Concomitant]
  5. BEXTRA [Concomitant]
  6. PREMPRO [Concomitant]
  7. HYDROCHLOROTHIAZIDE [Concomitant]
  8. LISINOPRIL [Concomitant]
  9. ADVAIR DISKUS 100/50 [Concomitant]

REACTIONS (10)
  - CARDIAC DISORDER [None]
  - CARDIAC FAILURE CONGESTIVE [None]
  - HEPATIC FAILURE [None]
  - PLEURAL EFFUSION [None]
  - RENAL FAILURE [None]
  - TRAUMATIC LUNG INJURY [None]
  - OEDEMA [None]
  - METABOLIC ACIDOSIS [None]
  - PNEUMONIA [None]
  - STAPHYLOCOCCAL SEPSIS [None]
